FAERS Safety Report 10101786 (Version 2)
Quarter: 2014Q2

REPORT INFORMATION
  Report Type: Spontaneous
  Country: US (occurrence: US)
  Receive Date: 20140424
  Receipt Date: 20140520
  Transmission Date: 20141212
  Serious: Yes (Hospitalization)
  Sender: FDA-Public Use
  Company Number: US-INCYTE CORPORATION-2014IN001083

PATIENT
  Age: 79 Year
  Sex: Female
  Weight: 62.59 kg

DRUGS (2)
  1. JAKAFI [Suspect]
     Indication: POLYCYTHAEMIA
     Dosage: 30 MG, BID
     Route: 048
     Dates: start: 20131021
  2. JAKAFI [Suspect]
     Dosage: 15 MG, BID
     Route: 048
     Dates: end: 201404

REACTIONS (1)
  - Pneumonia [Not Recovered/Not Resolved]
